FAERS Safety Report 8274155-5 (Version None)
Quarter: 2012Q2

REPORT INFORMATION
  Report Type: 
  Country: None (occurrence: None)
  Receive Date: 20120411
  Receipt Date: 20120409
  Transmission Date: 20120825
  Serious: No
  Sender: FDA-Public Use
  Company Number: US-PFIZER INC-2012088503

PATIENT
  Sex: Female
  Weight: 61.224 kg

DRUGS (5)
  1. ZOLOFT [Suspect]
     Indication: ANXIETY
     Dosage: 100 MG, 1X/DAY
     Route: 048
     Dates: start: 20000101
  2. LEVONORGESTREL + ETHINYL ESTRADIOL [Concomitant]
     Indication: CONTRACEPTION
     Dosage: UNK
  3. ZOLOFT [Suspect]
     Indication: DEPRESSION
  4. LORATADINE [Concomitant]
     Dosage: 10 MG, 1X/DAY
  5. MULTI-VITAMINS [Concomitant]
     Dosage: UNK, 1X/DAY

REACTIONS (1)
  - FEELING ABNORMAL [None]
